FAERS Safety Report 20533711 (Version 1)
Quarter: 2022Q1

REPORT INFORMATION
  Report Type: Spontaneous
  Country: JP (occurrence: JP)
  Receive Date: 20220301
  Receipt Date: 20220301
  Transmission Date: 20220423
  Serious: Yes (Other)
  Sender: FDA-Public Use
  Company Number: JP-TAIHO-TT220039_P_1

PATIENT

DRUGS (1)
  1. LONSURF [Suspect]
     Active Substance: TIPIRACIL HYDROCHLORIDE\TRIFLURIDINE
     Indication: Metastatic neoplasm
     Dosage: DETAILS NOT REPORTED
     Route: 048

REACTIONS (1)
  - Ileostomy [Unknown]
